FAERS Safety Report 5733639-1 (Version None)
Quarter: 2008Q2

REPORT INFORMATION
  Report Type: 
  Country: None (occurrence: None)
  Receive Date: 20080509
  Receipt Date: 20080122
  Transmission Date: 20081010
  Serious: No
  Sender: FDA-Public Use
  Company Number: A0704609A

PATIENT
  Sex: Female

DRUGS (2)
  1. ALTABAX [Suspect]
     Dosage: 1APP TWICE PER DAY
     Route: 061
     Dates: start: 20080118
  2. AUGMENTIN '125' [Concomitant]

REACTIONS (2)
  - CHEILITIS [None]
  - LIP SWELLING [None]
